FAERS Safety Report 6855103-9 (Version None)
Quarter: 2010Q3

REPORT INFORMATION
  Report Type: 
  Country: None (occurrence: None)
  Receive Date: 20100717
  Receipt Date: 20081125
  Transmission Date: 20110219
  Serious: Yes (Other)
  Sender: FDA-Public Use
  Company Number: US-PFIZER INC-2007108694

PATIENT
  Age: 58 Year
  Sex: Female
  Weight: 88.889 kg

DRUGS (17)
  1. CHANTIX [Suspect]
     Indication: SMOKING CESSATION THERAPY
     Dosage: 1 MG, 1X/DAY
     Route: 048
     Dates: start: 20070321
  2. GLYBURIDE [Concomitant]
  3. AVANDIA [Concomitant]
  4. NORVASC [Concomitant]
  5. TRIAMTERENE [Concomitant]
  6. NEXIUM [Concomitant]
  7. ZYRTEC-D 12 HOUR [Concomitant]
  8. CELEXA [Concomitant]
  9. CELEBREX [Concomitant]
  10. TRICOR [Concomitant]
  11. CYMBALTA [Concomitant]
  12. CLONAZEPAM [Concomitant]
  13. KEPPRA [Concomitant]
  14. DARIFENACIN HYDROBROMIDE [Concomitant]
  15. AMBIEN [Concomitant]
  16. VICODIN HP [Concomitant]
  17. LIDODERM [Concomitant]

REACTIONS (2)
  - OEDEMA PERIPHERAL [None]
  - PAIN IN EXTREMITY [None]
